FAERS Safety Report 6872207-5 (Version None)
Quarter: 2010Q3

REPORT INFORMATION
  Report Type: 
  Country: None (occurrence: None)
  Receive Date: 20100723
  Receipt Date: 20100708
  Transmission Date: 20110219
  Serious: Yes (Other)
  Sender: FDA-Public Use
  Company Number: US-SANOFI-AVENTIS-2010SA039447

PATIENT
  Age: 77 Year
  Sex: Female

DRUGS (6)
  1. PLAVIX [Suspect]
     Route: 048
     Dates: start: 20071109
  2. PLAVIX [Suspect]
     Route: 048
     Dates: start: 20071109
  3. CLONIDINE [Suspect]
     Route: 065
     Dates: start: 20100610
  4. LEVOTHYROXINE SODIUM [Concomitant]
  5. DILANTIN /AUS/ [Concomitant]
  6. CAPTOPRIL [Concomitant]

REACTIONS (12)
  - ASTHENIA [None]
  - CONFUSIONAL STATE [None]
  - CONTUSION [None]
  - DIZZINESS [None]
  - FALL [None]
  - JOINT INJURY [None]
  - LIVER FUNCTION TEST ABNORMAL [None]
  - MUSCULOSKELETAL DISCOMFORT [None]
  - PAIN [None]
  - SKIN DISORDER [None]
  - TRANSIENT ISCHAEMIC ATTACK [None]
  - VISUAL IMPAIRMENT [None]
